FAERS Safety Report 17501393 (Version 1)
Quarter: 2020Q1

REPORT INFORMATION
  Report Type: Spontaneous
  Country: US (occurrence: US)
  Receive Date: 20200304
  Receipt Date: 20200304
  Transmission Date: 20200409
  Serious: No
  Sender: FDA-Public Use
  Company Number: None

PATIENT
  Age: 83 Year
  Sex: Male
  Weight: 54 kg

DRUGS (22)
  1. MIRTAZIPINE [Concomitant]
     Active Substance: MIRTAZAPINE
  2. LYCOPENE [Concomitant]
     Active Substance: LYCOPENE
  3. CRANBERRY JUICE [Concomitant]
     Active Substance: CRANBERRY JUICE
  4. PANTOPRAZOLE [Concomitant]
     Active Substance: PANTOPRAZOLE
  5. QUETIAPINE. [Concomitant]
     Active Substance: QUETIAPINE
  6. LISINOPRIL. [Concomitant]
     Active Substance: LISINOPRIL
  7. VITAMIN E [Concomitant]
     Active Substance: .ALPHA.-TOCOPHEROL
  8. HCTZ [Concomitant]
     Active Substance: HYDROCHLOROTHIAZIDE
  9. INLYTA [Suspect]
     Active Substance: AXITINIB
     Indication: RENAL CANCER
     Route: 048
     Dates: start: 20191115, end: 20200304
  10. VITAMIN D [Concomitant]
     Active Substance: VITAMIN D NOS
  11. FERROUS SULFATE. [Concomitant]
     Active Substance: FERROUS SULFATE
  12. BET CAROTENE [Concomitant]
  13. LEVOTHYROXINE. [Concomitant]
     Active Substance: LEVOTHYROXINE
  14. NORVASC [Concomitant]
     Active Substance: AMLODIPINE BESYLATE
  15. HAWTHORNE BERRY [Concomitant]
  16. TAMSULOSIN [Concomitant]
     Active Substance: TAMSULOSIN
  17. CHROMIUM [Concomitant]
     Active Substance: CHROMIC CHLORIDE\CHROMIUM
  18. VITAMIN B-COMPLEX [Concomitant]
     Active Substance: DEXPANTHENOL\NIACINAMIDE\PYRIDOXINE HYDROCHLORIDE\RIBOFLAVIN 5^-PHOSPHATE SODIUM\THIAMINE HYDROCHLORIDE
  19. BIOTIN [Concomitant]
     Active Substance: BIOTIN
  20. VITAMIN A [Concomitant]
     Active Substance: VITAMIN A
  21. LUTEIN 20 [Concomitant]
  22. BILBERRY [Concomitant]
     Active Substance: BILBERRY

REACTIONS (2)
  - Diarrhoea [None]
  - Weight decreased [None]

NARRATIVE: CASE EVENT DATE: 20200304
